FAERS Safety Report 4412411-9 (Version None)
Quarter: 2004Q3

REPORT INFORMATION
  Report Type: 
  Country: None (occurrence: None)
  Receive Date: 20040727
  Receipt Date: 20040715
  Transmission Date: 20050211
  Serious: Yes (Other)
  Sender: FDA-Public Use
  Company Number: 200413493BCC

PATIENT
  Age: 83 Year
  Sex: Male
  Weight: 72.5755 kg

DRUGS (2)
  1. ASPIRIN [Suspect]
     Indication: CEREBROVASCULAR ACCIDENT
     Dosage: 325 MG, QD,ORAL
     Route: 048
     Dates: start: 20020101
  2. LIPITOR [Concomitant]

REACTIONS (3)
  - CONDITION AGGRAVATED [None]
  - HYPOAESTHESIA [None]
  - PERIPHERAL COLDNESS [None]
